FAERS Safety Report 5608056-5 (Version None)
Quarter: 2008Q1

REPORT INFORMATION
  Report Type: 
  Country: None (occurrence: None)
  Receive Date: 20080128
  Receipt Date: 20080128
  Transmission Date: 20080703
  Serious: Yes (Hospitalization)
  Sender: FDA-Public Use
  Company Number: None

PATIENT
  Sex: Male
  Weight: 115 kg

DRUGS (2)
  1. CISPLATIN [Suspect]
     Indication: TONGUE CANCER METASTATIC
     Dosage: 100MG/M2 IV Q3WKS
     Route: 042
     Dates: start: 20080114
  2. CETUXIMAB [Suspect]
     Dosage: 250MG/M2 IV QW
     Dates: start: 20080121

REACTIONS (3)
  - ASTHENIA [None]
  - DEHYDRATION [None]
  - DIZZINESS [None]
